FAERS Safety Report 15559349 (Version 1)
Quarter: 2018Q4

REPORT INFORMATION
  Report Type: Spontaneous
  Country: VN (occurrence: VN)
  Receive Date: 20181029
  Receipt Date: 20181029
  Transmission Date: 20190205
  Serious: Yes (Other)
  Sender: FDA-Public Use
  Company Number: VN-TEVA-2018-VN-966990

PATIENT
  Age: 33 Year

DRUGS (1)
  1. CEFAZOLIN ACTAVIS [Suspect]
     Active Substance: CEFAZOLIN
     Route: 065

REACTIONS (6)
  - Generalised erythema [Unknown]
  - Dyspnoea [Unknown]
  - Tachycardia [Unknown]
  - Pruritus [Unknown]
  - Hypoaesthesia oral [Unknown]
  - Anaphylactic reaction [Unknown]
